FAERS Safety Report 20643496 (Version 10)
Quarter: 2022Q3

REPORT INFORMATION
  Report Type: Other
  Country: GB (occurrence: GB)
  Receive Date: 20220328
  Receipt Date: 20220930
  Transmission Date: 20221027
  Serious: Yes (Death, Hospitalization, Congenital Anomaly, Other)
  Sender: FDA-Public Use
  Company Number: GB-MACLEODS PHARMA UK LTD-MAC2022034838

PATIENT

DRUGS (14)
  1. ABACAVIR\LAMIVUDINE [Suspect]
     Active Substance: ABACAVIR\LAMIVUDINE
     Indication: Product used for unknown indication
     Dosage: UNK
     Route: 064
  2. ABACAVIR\LAMIVUDINE [Suspect]
     Active Substance: ABACAVIR\LAMIVUDINE
     Dosage: 1 DOSAGE FORM, QD (1 TAB/CAP),TABLET (1ST TRIMESTER)
     Route: 064
  3. ABACAVIR\LAMIVUDINE [Suspect]
     Active Substance: ABACAVIR\LAMIVUDINE
     Dosage: 1 DOSAGE FORM, QD (FILM COATED TABLET), FIRST TRIMESTER
     Route: 064
  4. ABACAVIR [Suspect]
     Active Substance: ABACAVIR
     Indication: Product used for unknown indication
     Dosage: 1 DOSAGE FORM, QD (FILM-COATED TABLET)
     Route: 064
  5. LAMIVUDINE [Suspect]
     Active Substance: LAMIVUDINE
     Indication: Product used for unknown indication
     Dosage: 1 DOSAGE FORM, QD (FILM COATED TABLET)
     Route: 064
  6. DARUNAVIR [Suspect]
     Active Substance: DARUNAVIR
     Indication: Product used for unknown indication
     Dosage: UNK, 1 TABLET/CAPSULE
     Route: 064
  7. DARUNAVIR [Suspect]
     Active Substance: DARUNAVIR
     Dosage: UNK, FIRST TRIMESTER
     Route: 064
  8. RALTEGRAVIR [Suspect]
     Active Substance: RALTEGRAVIR
     Indication: Product used for unknown indication
     Dosage: UNK; 1200, FIRST TRIMESTER
     Route: 064
  9. PREZCOBIX [Suspect]
     Active Substance: COBICISTAT\DARUNAVIR ETHANOLATE
     Indication: Product used for unknown indication
     Dosage: UNK
     Route: 064
  10. PREZCOBIX [Suspect]
     Active Substance: COBICISTAT\DARUNAVIR ETHANOLATE
     Dosage: 1 DOSAGE FORM, QD, 1 TABLET/CAPSULE; 1 TRIMESTER; FILM COATED TABLET
     Route: 064
  11. PREZCOBIX [Suspect]
     Active Substance: COBICISTAT\DARUNAVIR ETHANOLATE
     Dosage: 1 DOSAGE FORM, QD, 1 TABLET/CAPSULE; 1 TRIMESTER FILM COATED TABLET
     Route: 064
  12. COBICISTAT [Suspect]
     Active Substance: COBICISTAT
     Indication: Product used for unknown indication
     Dosage: UNK
     Route: 064
  13. COBICISTAT [Suspect]
     Active Substance: COBICISTAT
     Dosage: 1 DOSAGE FORM, QD (1 TABLET/CAPSULE), 1BTRIMESTER
     Route: 064
  14. COBICISTAT\DARUNAVIR ETHANOLATE [Suspect]
     Active Substance: COBICISTAT\DARUNAVIR ETHANOLATE
     Indication: Product used for unknown indication
     Dosage: 1 DOSAGE FORM, QD(PARENT^S DOSE: 1 TABLET/CAPSULE)
     Route: 064

REACTIONS (10)
  - Brain injury [Fatal]
  - Foetal growth abnormality [Fatal]
  - Foetal growth restriction [Fatal]
  - Gastroschisis [Fatal]
  - Congenital intestinal malformation [Fatal]
  - Spina bifida [Fatal]
  - Hydrocephalus [Fatal]
  - Foetal exposure during pregnancy [Fatal]
  - Foetal exposure during pregnancy [Fatal]
  - Foetal death [Fatal]

NARRATIVE: CASE EVENT DATE: 20190107
